FAERS Safety Report 8891541 (Version 1)
Quarter: 2012Q4

REPORT INFORMATION
  Report Type: 
  Country: US (occurrence: US)
  Receive Date: 20121107
  Receipt Date: 20121107
  Transmission Date: 20130627
  Serious: No
  Sender: FDA-Public Use
  Company Number: US-009507513-1210USA014408

PATIENT
  Age: 2 Year
  Sex: Female

DRUGS (1)
  1. SINGULAIR [Suspect]
     Indication: HYPERSENSITIVITY
     Route: 048

REACTIONS (5)
  - Abnormal behaviour [Recovering/Resolving]
  - Compulsions [Recovering/Resolving]
  - Anger [Recovering/Resolving]
  - Irritability [Recovering/Resolving]
  - Sleep disorder [Recovering/Resolving]
